FAERS Safety Report 8468204-9 (Version None)
Quarter: 2012Q2

REPORT INFORMATION
  Report Type: 
  Country: None (occurrence: None)
  Receive Date: 20120626
  Receipt Date: 20120621
  Transmission Date: 20120825
  Serious: Yes (Disabling)
  Sender: FDA-Public Use
  Company Number: US-PFIZER INC-2012149719

PATIENT
  Sex: Male
  Weight: 118 kg

DRUGS (3)
  1. LYRICA [Suspect]
     Indication: BURNING SENSATION
  2. NORCO [Concomitant]
     Indication: BACK PAIN
     Dosage: 10/325 MG, UNK
  3. LYRICA [Suspect]
     Indication: NERVOUS SYSTEM DISORDER
     Dosage: 75 MG, 3X/DAY
     Route: 048

REACTIONS (2)
  - BACK INJURY [None]
  - MUSCLE SPASMS [None]
